FAERS Safety Report 11826535 (Version 1)
Quarter: 2015Q4

REPORT INFORMATION
  Report Type: Spontaneous
  Country: US (occurrence: None)
  Receive Date: 20151210
  Receipt Date: 20151210
  Transmission Date: 20160305
  Serious: Yes (Other)
  Sender: FDA-Public Use
  Company Number: None

PATIENT
  Age: 43 Year
  Sex: Female

DRUGS (1)
  1. HUMIRA [Suspect]
     Active Substance: ADALIMUMAB
     Indication: RHEUMATOID ARTHRITIS
     Dosage: 40MG/0.8ML INJECT SUBCUTANEOUSLY 40MG EVERY OTH
     Route: 058
     Dates: start: 20150915

REACTIONS (2)
  - Injection site bruising [None]
  - Product substitution issue [None]

NARRATIVE: CASE EVENT DATE: 20151030
